FAERS Safety Report 6025020-5 (Version None)
Quarter: 2008Q4

REPORT INFORMATION
  Report Type: 
  Country: None (occurrence: None)
  Receive Date: 20081231
  Receipt Date: 20081223
  Transmission Date: 20090506
  Serious: Yes (Death)
  Sender: FDA-Public Use
  Company Number: US-JNJFOC-20080705625

PATIENT
  Sex: Male
  Weight: 75.3 kg

DRUGS (12)
  1. DURAGESIC-100 [Suspect]
     Route: 062
  2. DURAGESIC-100 [Suspect]
     Route: 062
  3. DURAGESIC-100 [Suspect]
     Route: 062
  4. DURAGESIC-100 [Suspect]
     Indication: PAIN
     Route: 062
  5. FENTANYL TRANSDERMAL SYSTEM [Suspect]
     Indication: PAIN
     Route: 055
  6. FENTANYL TRANSDERMAL SYSTEM [Suspect]
     Indication: PAIN
     Route: 062
  7. MORPHINE [Concomitant]
     Indication: BREAKTHROUGH PAIN
  8. DIAZEPAM [Concomitant]
  9. AMITRIPTYLINE [Concomitant]
  10. DETROL LA [Concomitant]
     Route: 048
  11. EFFEXOR XR [Concomitant]
  12. METOCLOPRAMIDE [Concomitant]

REACTIONS (3)
  - DRUG TOXICITY [None]
  - HYPERTENSIVE HEART DISEASE [None]
  - PYELONEPHRITIS [None]
